FAERS Safety Report 5348878-1 (Version None)
Quarter: 2007Q2

REPORT INFORMATION
  Report Type: 
  Country: None (occurrence: None)
  Receive Date: 20070607
  Receipt Date: 20070525
  Transmission Date: 20071010
  Serious: Yes (Other)
  Sender: FDA-Public Use
  Company Number: PHBS2007US09049

PATIENT
  Age: 73 Year
  Sex: Female

DRUGS (6)
  1. GLEEVEC [Suspect]
     Indication: GASTROINTESTINAL STROMAL TUMOUR
     Dosage: 600 MG/D
     Route: 065
  2. LEVOTHYROXINE SODIUM [Suspect]
     Dosage: 200 UG/D
     Route: 065
  3. LEVOTHYROXINE SODIUM [Suspect]
     Dosage: 175 UG/D
     Route: 065
  4. LEVOTHYROXINE SODIUM [Suspect]
     Dosage: 300 UG/D
     Route: 065
  5. LEVOTHYROXINE SODIUM [Suspect]
     Dosage: 175 UG/D
     Route: 065
  6. SUTENT [Suspect]
     Dosage: 50 MG/D
     Route: 065

REACTIONS (10)
  - ALOPECIA [None]
  - ASTHENIA [None]
  - BLOOD THYROID STIMULATING HORMONE INCREASED [None]
  - FACE OEDEMA [None]
  - FATIGUE [None]
  - HYPOTHYROIDISM [None]
  - NAUSEA [None]
  - ONYCHOCLASIS [None]
  - PERIORBITAL OEDEMA [None]
  - TEMPERATURE INTOLERANCE [None]
